FAERS Safety Report 23538172 (Version 1)
Quarter: 2024Q1

REPORT INFORMATION
  Report Type: Spontaneous
  Country: FR (occurrence: FR)
  Receive Date: 20240219
  Receipt Date: 20240219
  Transmission Date: 20240409
  Serious: Yes (Death, Hospitalization)
  Sender: FDA-Public Use
  Company Number: None

PATIENT
  Age: 87 Year
  Sex: Female

DRUGS (1)
  1. METHOTREXATE [Suspect]
     Active Substance: METHOTREXATE
     Indication: Polyarthritis
     Dates: end: 20231209

REACTIONS (4)
  - Bone marrow failure [Fatal]
  - Melaena [Not Recovered/Not Resolved]
  - Oral disorder [Not Recovered/Not Resolved]
  - Medication error [Fatal]

NARRATIVE: CASE EVENT DATE: 20231208
